FAERS Safety Report 16499324 (Version 2)
Quarter: 2019Q3

REPORT INFORMATION
  Report Type: Spontaneous
  Country: FR (occurrence: FR)
  Receive Date: 20190701
  Receipt Date: 20190722
  Transmission Date: 20191004
  Serious: Yes (Other)
  Sender: FDA-Public Use
  Company Number: FR-CELLTRION INC.-2019FR022336

PATIENT

DRUGS (6)
  1. KENACORT A [TRIAMCINOLONE] [Concomitant]
     Dosage: 40 MG, UNK WITH NITROUS OXIDE
     Route: 030
  2. NITROUS OXIDE. [Concomitant]
     Active Substance: NITROUS OXIDE
     Dosage: UNK WITH KENACORT (INTRAMUSCULAR)
  3. INFLIXIMAB (UNKNOWN) [Suspect]
     Active Substance: INFLIXIMAB
     Indication: CUTANEOUS SARCOIDOSIS
     Dosage: UNK (DOSE FORM: POWDER FOR INJECTION)
     Route: 065
  4. DERMOVAL [BETAMETHASONE] [Concomitant]
     Active Substance: BETAMETHASONE
     Dosage: UNK
  5. PLAQUENIL [Concomitant]
     Active Substance: HYDROXYCHLOROQUINE SULFATE
     Dosage: 2 DF, DAILY
  6. METHOTREXATE. [Concomitant]
     Active Substance: METHOTREXATE
     Dosage: 0.3 MG/KG/DAY
     Route: 042

REACTIONS (1)
  - Off label use [Unknown]
